FAERS Safety Report 20826747 (Version 7)
Quarter: 2023Q1

REPORT INFORMATION
  Report Type: Spontaneous
  Country: GB (occurrence: GB)
  Receive Date: 20220513
  Receipt Date: 20230113
  Transmission Date: 20230417
  Serious: Yes (Hospitalization, Other)
  Sender: FDA-Public Use
  Company Number: GB-VERTEX PHARMACEUTICALS-2022-006958

PATIENT
  Sex: Female

DRUGS (55)
  1. ELEXACAFTOR\IVACAFTOR\TEZACAFTOR [Suspect]
     Active Substance: ELEXACAFTOR\IVACAFTOR\TEZACAFTOR
     Indication: Cystic fibrosis
     Dosage: 75MG/50MG/100MG.
     Route: 048
     Dates: end: 20220429
  2. KALYDECO [Suspect]
     Active Substance: IVACAFTOR
     Indication: Cystic fibrosis
     Dosage: UNK
     Route: 048
  3. KALYDECO [Suspect]
     Active Substance: IVACAFTOR
     Dosage: UNK
     Route: 048
  4. KALYDECO [Suspect]
     Active Substance: IVACAFTOR
     Dosage: UNK
     Route: 048
  5. LINEZOLID [Suspect]
     Active Substance: LINEZOLID
     Indication: Product used for unknown indication
     Dosage: 300 MILLIGRAM, TID
     Route: 065
     Dates: end: 20220429
  6. OMEPRAZOLE [Suspect]
     Active Substance: OMEPRAZOLE
     Indication: Duodenal ulcer
     Dosage: 20 MILLIGRAM, BID
     Route: 055
  7. OMEPRAZOLE [Suspect]
     Active Substance: OMEPRAZOLE
     Dosage: 20 MILLIGRAM
     Route: 055
  8. OMEPRAZOLE [Suspect]
     Active Substance: OMEPRAZOLE
     Dosage: 20 MILLIGRAM
     Route: 055
  9. AMIKACIN [Concomitant]
     Active Substance: AMIKACIN
     Dosage: 500 MILLIGRAM, BID
  10. AMIKACIN [Concomitant]
     Active Substance: AMIKACIN
     Dosage: 500 MILLIGRAM
  11. AMIKACIN [Concomitant]
     Active Substance: AMIKACIN
     Dosage: 500 MILLIGRAM
  12. BEDAQUILINE [Concomitant]
     Active Substance: BEDAQUILINE
     Dosage: 200 MG 3 TIMES A WEEK
     Route: 055
  13. BEDAQUILINE [Concomitant]
     Active Substance: BEDAQUILINE
     Dosage: 200 MG
  14. BEDAQUILINE [Concomitant]
     Active Substance: BEDAQUILINE
     Dosage: 200 MG
  15. BECLOMETHASONE DIPROPIONATE [Concomitant]
     Active Substance: BECLOMETHASONE DIPROPIONATE
     Dosage: PUFFS VIA SPACER
     Route: 055
  16. BECLOMETHASONE DIPROPIONATE [Concomitant]
     Active Substance: BECLOMETHASONE DIPROPIONATE
     Dosage: PUFFS VIA SPACER
     Route: 055
  17. BECLOMETHASONE DIPROPIONATE [Concomitant]
     Active Substance: BECLOMETHASONE DIPROPIONATE
     Dosage: PUFFS VIA SPACER
     Route: 055
  18. BECLOMETHASONE DIPROPIONATE [Concomitant]
     Active Substance: BECLOMETHASONE DIPROPIONATE
     Dosage: PUFFS VIA SPACER
     Route: 055
  19. CHOLECALCIFEROL [Concomitant]
     Active Substance: CHOLECALCIFEROL
     Dosage: 2 DOSAGE FORM, QD
     Route: 048
  20. CHOLECALCIFEROL [Concomitant]
     Active Substance: CHOLECALCIFEROL
     Dosage: WITH MEALS AND SNACKS
     Route: 048
  21. CHOLECALCIFEROL [Concomitant]
     Active Substance: CHOLECALCIFEROL
     Dosage: WITH MEALS AND SNACKS
     Route: 048
  22. CREON [Concomitant]
     Active Substance: PANCRELIPASE AMYLASE\PANCRELIPASE LIPASE\PANCRELIPASE PROTEASE
     Dosage: WITH MEALS AND SNACKS
     Route: 048
  23. CREON [Concomitant]
     Active Substance: PANCRELIPASE AMYLASE\PANCRELIPASE LIPASE\PANCRELIPASE PROTEASE
     Dosage: WITH MEALS AND SNACKS
     Route: 048
  24. CREON [Concomitant]
     Active Substance: PANCRELIPASE AMYLASE\PANCRELIPASE LIPASE\PANCRELIPASE PROTEASE
     Dosage: WITH MEALS AND SNACKS
     Route: 048
  25. CYPROHEPTADINE [Concomitant]
     Active Substance: CYPROHEPTADINE
     Dosage: 1/2 DAILY.
     Route: 048
  26. CYPROHEPTADINE [Concomitant]
     Active Substance: CYPROHEPTADINE
     Dosage: 4MG
     Route: 048
  27. CYPROHEPTADINE [Concomitant]
     Active Substance: CYPROHEPTADINE
     Dosage: 4MG
     Route: 048
  28. CYPROHEPTADINE [Concomitant]
     Active Substance: CYPROHEPTADINE
     Dosage: 4MG
     Route: 048
  29. CHOLECALCIFEROL [Concomitant]
     Active Substance: CHOLECALCIFEROL
     Dosage: 800 IU, QD
     Route: 048
  30. CHOLECALCIFEROL [Concomitant]
     Active Substance: CHOLECALCIFEROL
     Dosage: ON MON, WED, AND FRI
     Route: 048
  31. CHOLECALCIFEROL [Concomitant]
     Active Substance: CHOLECALCIFEROL
     Dosage: ON MON, WED, AND FRI
     Route: 048
  32. CHOLECALCIFEROL [Concomitant]
     Active Substance: CHOLECALCIFEROL
     Dosage: ON MON, WED, AND FRI
     Route: 048
  33. INSULIN ASPART [Concomitant]
     Active Substance: INSULIN ASPART
     Dosage: AS BY DIABETES TEAM
     Route: 058
  34. INSULIN ASPART [Concomitant]
     Active Substance: INSULIN ASPART
     Dosage: ON MON, WED, AND FRI
     Route: 058
  35. INSULIN ASPART [Concomitant]
     Active Substance: INSULIN ASPART
     Dosage: ON MON, WED, AND FRI
     Route: 058
  36. MENADIOL [Concomitant]
     Active Substance: MENADIOL
     Dosage: 10 MG ON MON, WED, AND FRI
     Route: 048
  37. MENADIOL [Concomitant]
     Active Substance: MENADIOL
     Dosage: ON MON, WED, AND FRI
     Route: 048
  38. MENADIOL [Concomitant]
     Active Substance: MENADIOL
     Dosage: ON MON, WED, AND FRI
     Route: 048
  39. MENADIOL [Concomitant]
     Active Substance: MENADIOL
     Dosage: ON MON, WED, AND FRI
     Route: 048
  40. PYRIDOXINE [Concomitant]
     Active Substance: PYRIDOXINE
     Dosage: 100 MG, QD
  41. PYRIDOXINE [Concomitant]
     Active Substance: PYRIDOXINE
     Dosage: PUFFS, BEFORE BEDTIME
     Route: 055
  42. SODIUM CHLORIDE [Concomitant]
     Active Substance: SODIUM CHLORIDE
     Dosage: 1 DOSAGE FORM, BID
  43. SODIUM CHLORIDE [Concomitant]
     Active Substance: SODIUM CHLORIDE
     Dosage: PUFFS, PRIOR TO BEDTIME
     Route: 055
  44. SODIUM CHLORIDE [Concomitant]
     Active Substance: SODIUM CHLORIDE
     Dosage: PUFFS, PRIOR TO BEDTIME
  45. SODIUM CHLORIDE [Concomitant]
     Active Substance: SODIUM CHLORIDE
     Dosage: PUFFS, PRIOR TO BEDTIME
  46. ALBUTEROL [Concomitant]
     Active Substance: ALBUTEROL
     Dosage: 3 MG, 2 DOSAGE FORM, QD PUFFS
     Route: 055
  47. ALBUTEROL [Concomitant]
     Active Substance: ALBUTEROL
     Dosage: 25 IU, PUFFS. PRIOR TO BEDTIME
     Route: 055
  48. ALBUTEROL [Concomitant]
     Active Substance: ALBUTEROL
     Dosage: PUFFS, PRIOR TO BEDTIME
     Route: 055
  49. ALBUTEROL [Concomitant]
     Active Substance: ALBUTEROL
     Dosage: PUFFS, PRIOR TO BEDTIME
     Route: 055
  50. VITAMIN D3 [Concomitant]
     Active Substance: CHOLECALCIFEROL
     Dosage: 500 IU
  51. VITAMIN D3 [Concomitant]
     Active Substance: CHOLECALCIFEROL
     Dosage: 500 IU
  52. VITAMIN D3 [Concomitant]
     Active Substance: CHOLECALCIFEROL
     Dosage: 500 IU
  53. ALBUTEROL [Concomitant]
     Active Substance: ALBUTEROL
  54. BECLOMETHASONE DIPROPIONATE [Concomitant]
     Active Substance: BECLOMETHASONE DIPROPIONATE
  55. INSULIN NOS [Concomitant]
     Active Substance: INSULIN NOS

REACTIONS (15)
  - Lupus-like syndrome [Unknown]
  - Butterfly rash [Unknown]
  - Rash [Unknown]
  - Fungal infection [Unknown]
  - Drug hypersensitivity [Unknown]
  - Vascular device infection [Unknown]
  - Crying [Not Recovered/Not Resolved]
  - Systemic lupus erythematosus [Unknown]
  - Personality change [Not Recovered/Not Resolved]
  - Irritability [Not Recovered/Not Resolved]
  - Mood swings [Not Recovered/Not Resolved]
  - Disturbance in social behaviour [Not Recovered/Not Resolved]
  - Arthritis [Not Recovered/Not Resolved]
  - Emotional disorder [Not Recovered/Not Resolved]
  - Mood altered [Not Recovered/Not Resolved]
